FAERS Safety Report 10623232 (Version 1)
Quarter: 2014Q4

REPORT INFORMATION
  Report Type: Spontaneous
  Country: FR (occurrence: FR)
  Receive Date: 20141203
  Receipt Date: 20141203
  Transmission Date: 20150529
  Serious: Yes (Other)
  Sender: FDA-Public Use
  Company Number: FR-SHIRE-FR201408323

PATIENT
  Sex: Male

DRUGS (2)
  1. XAGRID [Suspect]
     Active Substance: ANAGRELIDE HYDROCHLORIDE
     Indication: PRODUCT USED FOR UNKNOWN INDICATION
     Dosage: UNK, UNKNOWN
     Route: 048
     Dates: start: 2011
  2. XAGRID [Suspect]
     Active Substance: ANAGRELIDE HYDROCHLORIDE
     Dosage: 1.0 MG (TWO 0.5 MG CAPSULES), 2X/DAY:BID (IN THE MORNING AND EVENING)
     Route: 048

REACTIONS (2)
  - Haemoglobin abnormal [Unknown]
  - Myelocytosis [Unknown]
